FAERS Safety Report 5904025-6 (Version None)
Quarter: 2008Q3

REPORT INFORMATION
  Report Type: 
  Country: None (occurrence: None)
  Receive Date: 20080919
  Receipt Date: 20080717
  Transmission Date: 20090109
  Serious: No
  Sender: FDA-Public Use
  Company Number: US-WYE-H05185108

PATIENT
  Age: 75 Year
  Sex: Female

DRUGS (3)
  1. PRISTIQ (DESVENLAFAXINE SUCCINATE MONOHYDRATE [Suspect]
     Indication: MIGRAINE
     Dosage: 50 MG 1X PER 1 DAY, ORAL
     Route: 048
     Dates: start: 20080716
  2. IMITREX [Concomitant]
  3. LEVOTHYROXINE SODIUM [Concomitant]

REACTIONS (2)
  - FEELING JITTERY [None]
  - NAUSEA [None]
